FAERS Safety Report 16949454 (Version 3)
Quarter: 2020Q3

REPORT INFORMATION
  Report Type: Report from Study
  Country: None (occurrence: US)
  Receive Date: 20191023
  Receipt Date: 20200701
  Transmission Date: 20201102
  Serious: Yes (Other)
  Sender: FDA-Public Use
  Company Number: US-ABBVIE-19K-163-2968876-00

PATIENT
  Sex: Female
  Weight: 239.71 kg

DRUGS (4)
  1. HUMIRA [Suspect]
     Active Substance: ADALIMUMAB
     Indication: RHEUMATOID ARTHRITIS
     Route: 058
     Dates: start: 2018, end: 2020
  2. HUMIRA [Suspect]
     Active Substance: ADALIMUMAB
     Indication: UVEITIS
  3. HUMIRA [Suspect]
     Active Substance: ADALIMUMAB
     Indication: RHEUMATOID ARTHRITIS
     Route: 058
     Dates: start: 2020
  4. HUMIRA [Suspect]
     Active Substance: ADALIMUMAB
     Indication: UVEITIS

REACTIONS (4)
  - Blindness unilateral [Unknown]
  - Cataract [Recovering/Resolving]
  - Injection site pain [Recovered/Resolved]
  - Eye inflammation [Recovering/Resolving]
